FAERS Safety Report 16046066 (Version 1)
Quarter: 2019Q1

REPORT INFORMATION
  Report Type: Spontaneous
  Country: US (occurrence: US)
  Receive Date: 20190307
  Receipt Date: 20190307
  Transmission Date: 20190418
  Serious: No
  Sender: FDA-Public Use
  Company Number: US-GLENMARK PHARMACEUTICALS-2019GMK039300

PATIENT

DRUGS (2)
  1. LOSARTAN. [Concomitant]
     Active Substance: LOSARTAN
     Indication: HYPERTENSION
     Dosage: 100 MG, QD
     Route: 065
  2. AZELAIC ACID GEL, 15% [Suspect]
     Active Substance: AZELAIC ACID
     Indication: ROSACEA
     Dosage: UNK, BID (ONCE IN THE MORNING AND ONCE AT NIGHT)
     Route: 061
     Dates: start: 20181226, end: 20190107

REACTIONS (4)
  - Rosacea [Recovering/Resolving]
  - Product substitution issue [Unknown]
  - Drug ineffective [Unknown]
  - Product physical consistency issue [Unknown]

NARRATIVE: CASE EVENT DATE: 20190105
